FAERS Safety Report 8500107-3 (Version None)
Quarter: 2012Q3

REPORT INFORMATION
  Report Type: 
  Country: None (occurrence: None)
  Receive Date: 20120710
  Receipt Date: 20120703
  Transmission Date: 20120928
  Serious: Yes (Hospitalization)
  Sender: FDA-Public Use
  Company Number: US-BAYER-2012-031572

PATIENT
  Age: 31 Year
  Sex: Female
  Weight: 131.52 kg

DRUGS (11)
  1. PREP H [Concomitant]
     Indication: HAEMORRHOIDS
     Dosage: UNK UNK, PRN
     Route: 061
  2. TUMS [CALCIUM CARBONATE,MAGNESIUM CARBONATE,MAGNESIUM TRISILICATE] [Concomitant]
     Route: 048
  3. ACETAMINOPHEN [Concomitant]
     Dosage: UNK UNK, PRN
  4. MULTI-VITAMINS [Concomitant]
     Indication: PREGNANCY
     Dosage: DAILY
     Route: 048
  5. FERROUS SULFATE TAB [Concomitant]
     Indication: SUPPLEMENTATION THERAPY
     Dosage: 325 MG, DAILY
     Route: 048
  6. YASMIN [Suspect]
     Dosage: UNK
     Dates: start: 20050101
  7. VALTREX [Concomitant]
     Dosage: 500 MG, DAILY
     Route: 048
  8. HYDROCODONE [Concomitant]
     Indication: PAIN
     Dosage: UNK UNK, PRN
     Route: 048
  9. SENOKOT [Concomitant]
     Indication: CONSTIPATION
     Dosage: UNK UNK, PRN
     Route: 048
  10. MOTRIN [Concomitant]
     Indication: PAIN
     Dosage: 600 MG, PRN
     Route: 048
  11. PEPCID AC [Concomitant]
     Indication: DYSPEPSIA
     Route: 048

REACTIONS (3)
  - GALLBLADDER DISORDER [None]
  - PAIN [None]
  - CHOLECYSTITIS ACUTE [None]
